FAERS Safety Report 20969136 (Version 9)
Quarter: 2024Q2

REPORT INFORMATION
  Report Type: Spontaneous
  Country: IN (occurrence: IN)
  Receive Date: 20220616
  Receipt Date: 20240515
  Transmission Date: 20240716
  Serious: Yes (Other)
  Sender: FDA-Public Use
  Company Number: IN-PFIZER INC-PV202200003263

PATIENT
  Age: 49 Year
  Sex: Female

DRUGS (6)
  1. LORLATINIB [Suspect]
     Active Substance: LORLATINIB
     Dosage: 100 MG, 1X/DAY
     Route: 048
     Dates: start: 20220518
  2. LORLATINIB [Suspect]
     Active Substance: LORLATINIB
     Dosage: 75 MG, 1X/DAY
     Dates: end: 20240220
  3. LORLATINIB [Suspect]
     Active Substance: LORLATINIB
     Dosage: 50 MG, 1X/DAY
     Dates: start: 20240220, end: 20240324
  4. LORLATINIB [Suspect]
     Active Substance: LORLATINIB
     Dosage: 75 MG, 1X/DAY
     Dates: start: 20240325
  5. METFORMIN [Concomitant]
     Active Substance: METFORMIN HYDROCHLORIDE
     Indication: Diabetes mellitus
     Dosage: 500 MG
  6. ROSULIP F [Concomitant]
     Indication: Blood cholesterol
     Dosage: 10 MG

REACTIONS (9)
  - Blood cholesterol increased [Unknown]
  - Low density lipoprotein increased [Unknown]
  - Blood triglycerides increased [Unknown]
  - Blood glucose increased [Unknown]
  - Red blood cell count decreased [Unknown]
  - Swelling [Unknown]
  - Pyrexia [Unknown]
  - Oedema peripheral [Recovered/Resolved]
  - Product dose omission issue [Unknown]

NARRATIVE: CASE EVENT DATE: 20220613
